FAERS Safety Report 7594829-9 (Version None)
Quarter: 2011Q3

REPORT INFORMATION
  Report Type: 
  Country: None (occurrence: None)
  Receive Date: 20110707
  Receipt Date: 20110627
  Transmission Date: 20111222
  Serious: Yes (Hospitalization, Other)
  Sender: FDA-Public Use
  Company Number: US-ELI_LILLY_AND_COMPANY-US201002003765

PATIENT
  Sex: Male
  Weight: 111.11 kg

DRUGS (7)
  1. BYETTA [Suspect]
     Indication: DIABETES MELLITUS
     Dosage: UNK, UNKNOWN
     Route: 065
     Dates: start: 20050801, end: 20051001
  2. DRUG USED IN DIABETES [Concomitant]
     Route: 048
  3. ASPIRIN                                 /USA/ [Concomitant]
     Dosage: 81 MG, QD
     Route: 048
  4. ZOCOR [Concomitant]
     Dosage: 40 MG, QD
     Route: 048
  5. ALTACE [Concomitant]
     Dosage: 5 MG, QD
     Route: 048
  6. LASIX [Concomitant]
     Dosage: 40 MG, QD
     Route: 048
  7. GLYBURIDE [Concomitant]
     Dosage: 5 MG, QD

REACTIONS (4)
  - FATIGUE [None]
  - PANCREATITIS ACUTE [None]
  - ASTHENIA [None]
  - ABDOMINAL DISTENSION [None]
